FAERS Safety Report 7251340-2 (Version None)
Quarter: 2011Q1

REPORT INFORMATION
  Report Type: 
  Country: None (occurrence: None)
  Receive Date: 20110128
  Receipt Date: 20110126
  Transmission Date: 20110831
  Serious: Yes (Other)
  Sender: FDA-Public Use
  Company Number: DE-PFIZER INC-2011018260

PATIENT
  Age: 30 Year
  Sex: Female

DRUGS (1)
  1. ZOLOFT [Suspect]
     Dosage: 100 MG, UNK

REACTIONS (3)
  - MAGNESIUM DEFICIENCY [None]
  - EXTRASYSTOLES [None]
  - MUSCLE SPASMS [None]
